FAERS Safety Report 5446380-X (Version None)
Quarter: 2007Q3

REPORT INFORMATION
  Report Type: 
  Country: None (occurrence: None)
  Receive Date: 20070907
  Receipt Date: 20070829
  Transmission Date: 20080115
  Serious: Yes (Hospitalization)
  Sender: FDA-Public Use
  Company Number: B0486022A

PATIENT
  Age: 11 Year
  Sex: Male

DRUGS (1)
  1. CLAMOXYL [Suspect]
     Indication: ALLERGY TEST
     Route: 048
     Dates: start: 20061001

REACTIONS (3)
  - DERMATITIS EXFOLIATIVE [None]
  - RASH PRURITIC [None]
  - SKIN EXFOLIATION [None]
